FAERS Safety Report 8153556-X (Version None)
Quarter: 2012Q1

REPORT INFORMATION
  Report Type: 
  Country: None (occurrence: None)
  Receive Date: 20120103
  Receipt Date: 20111014
  Transmission Date: 20120608
  Serious: No
  Sender: FDA-Public Use
  Company Number: AE-2011-001037

PATIENT
  Age: 58 Year
  Sex: Male
  Weight: 102.0593 kg

DRUGS (3)
  1. INCIVEK [Suspect]
     Dosage: 2250 MG (750 MG,3 IN 1 D),ORAL
     Route: 048
     Dates: start: 20110730, end: 20111013
  2. RIBAVIRIN [Concomitant]
  3. PEGASYS [Concomitant]

REACTIONS (15)
  - CONTUSION [None]
  - ALOPECIA [None]
  - MELAENA [None]
  - PLATELET COUNT DECREASED [None]
  - PROCTALGIA [None]
  - HYPERHIDROSIS [None]
  - MUCOUS STOOLS [None]
  - BLOOD COUNT ABNORMAL [None]
  - INSOMNIA [None]
  - ANORECTAL DISCOMFORT [None]
  - HAEMORRHOIDS [None]
  - ANAL PRURITUS [None]
  - ANAL FISSURE [None]
  - RASH [None]
  - PYREXIA [None]
